FAERS Safety Report 19963026 (Version 1)
Quarter: 2021Q4

REPORT INFORMATION
  Report Type: Spontaneous
  Country: US (occurrence: US)
  Receive Date: 20211015
  Receipt Date: 20211015
  Transmission Date: 20220304
  Serious: Yes (unspecified)
  Sender: FDA-Public Use
  Company Number: None

PATIENT
  Age: 57 Year
  Sex: Male
  Weight: 89.4 kg

DRUGS (8)
  1. CISPLATIN [Suspect]
     Active Substance: CISPLATIN
     Indication: Cholangiocarcinoma
     Dosage: ?          OTHER FREQUENCY:EVERY 14 DAYS;
     Route: 042
     Dates: start: 20210416
  2. PALONOSETRON. [Concomitant]
     Active Substance: PALONOSETRON HYDROCHLORIDE
     Dates: start: 20210416
  3. APREPITANT [Concomitant]
     Active Substance: APREPITANT
     Dates: start: 20210416
  4. DEXAMETHASONE [Concomitant]
     Active Substance: DEXAMETHASONE
     Dates: start: 20210416
  5. GEMCITABINE [Concomitant]
     Active Substance: GEMCITABINE
     Dates: start: 20210416
  6. PEGFILGRASTIM [Concomitant]
     Active Substance: PEGFILGRASTIM
     Dates: start: 20210910
  7. ERYTHROPOIETIN [Concomitant]
     Active Substance: ERYTHROPOIETIN
     Dates: start: 20210721
  8. TRAMADOL [Concomitant]
     Active Substance: TRAMADOL
     Dates: start: 20210922

REACTIONS (4)
  - Pruritus [None]
  - Infusion related reaction [None]
  - Rash [None]
  - Rash macular [None]

NARRATIVE: CASE EVENT DATE: 20210924
